FAERS Safety Report 9326254 (Version 1)
Quarter: 2013Q2

REPORT INFORMATION
  Report Type: Spontaneous
  Country: US (occurrence: None)
  Receive Date: 20130603
  Receipt Date: 20130603
  Transmission Date: 20140414
  Serious: No
  Sender: FDA-Public Use
  Company Number: None

PATIENT
  Age: 61 Year
  Sex: Male

DRUGS (1)
  1. ENBREL 50MG AMGEN [Suspect]
     Indication: RHEUMATOID ARTHRITIS
     Dosage: QWK
     Route: 058
     Dates: start: 201304

REACTIONS (1)
  - Abdominal discomfort [None]
